FAERS Safety Report 11762671 (Version 5)
Quarter: 2015Q4

REPORT INFORMATION
  Report Type: Report from Study
  Country: ZA (occurrence: ZA)
  Receive Date: 20151120
  Receipt Date: 20151124
  Transmission Date: 20160304
  Serious: Yes (Death, Hospitalization)
  Sender: FDA-Public Use
  Company Number: ZA-B.I. PHARMACEUTICALS,INC./RIDGEFIELD-2015-BI-64662ZA

PATIENT
  Age: 66 Year
  Sex: Female

DRUGS (3)
  1. JARDIANCE [Suspect]
     Active Substance: EMPAGLIFLOZIN
     Indication: DIABETES MELLITUS
     Dosage: 25 MG
     Route: 048
     Dates: start: 20151026, end: 20151113
  2. BIOSULIN L [Concomitant]
     Indication: DIABETES MELLITUS
     Dosage: 20 U
     Route: 065
     Dates: start: 20151026, end: 20151113
  3. BIOSULIN R [Concomitant]
     Indication: DIABETES MELLITUS
     Dosage: 18 U
     Route: 065
     Dates: start: 20151026, end: 20151113

REACTIONS (3)
  - Ketoacidosis [Fatal]
  - Hypotension [Unknown]
  - Vomiting [Unknown]

NARRATIVE: CASE EVENT DATE: 20151113
